FAERS Safety Report 4690234-3 (Version None)
Quarter: 2005Q2

REPORT INFORMATION
  Report Type: 
  Country: None (occurrence: None)
  Receive Date: 20050615
  Receipt Date: 20050519
  Transmission Date: 20051028
  Serious: Yes (Other)
  Sender: FDA-Public Use
  Company Number: BR-ROCHE-405399

PATIENT
  Age: 55 Year
  Sex: Female
  Weight: 66 kg

DRUGS (3)
  1. XENICAL [Suspect]
     Indication: DRUG USE FOR UNKNOWN INDICATION
     Route: 048
     Dates: start: 20050417
  2. REDUCTIL [Suspect]
     Indication: DRUG USE FOR UNKNOWN INDICATION
     Route: 065
  3. VITAMIN COMPLEX NOS [Concomitant]
     Route: 048

REACTIONS (2)
  - CONSTIPATION [None]
  - HAEMATOCHEZIA [None]
